FAERS Safety Report 8874522 (Version 2)
Quarter: 2012Q4

REPORT INFORMATION
  Report Type: 
  Country: US (occurrence: US)
  Receive Date: 20121029
  Receipt Date: 20121211
  Transmission Date: 20130627
  Serious: Yes (Other)
  Sender: FDA-Public Use
  Company Number: US-ELI_LILLY_AND_COMPANY-US201210005680

PATIENT
  Age: 67 Year
  Sex: Female

DRUGS (11)
  1. CYMBALTA [Suspect]
     Indication: FIBROMYALGIA
     Dosage: 60 mg, qd
     Dates: start: 201111, end: 20121002
  2. PAROXETINE HCL [Concomitant]
     Dosage: 40 mg, UNK
  3. LISINOPRIL [Concomitant]
     Dosage: 20 mg, UNK
  4. CYCLOBENZAPRINE [Concomitant]
     Dosage: 10 mg, UNK
  5. LEVOTHYROXINE [Concomitant]
     Dosage: 88 ug, UNK
  6. ROPINIROLE HYDROCHLORIDE [Concomitant]
     Dosage: 3 mg, 4/D
  7. HIDROCLOROTIAZIDE [Concomitant]
     Dosage: 25 mg, UNK
  8. BABY ASPIRIN [Concomitant]
  9. SENNA [Concomitant]
  10. NAPROXEN [Concomitant]
     Dosage: 2 DF, bid
  11. VICODIN [Concomitant]
     Dosage: 1 DF, prn

REACTIONS (12)
  - Surgery [Unknown]
  - Nerve injury [Not Recovered/Not Resolved]
  - Drug withdrawal syndrome [Not Recovered/Not Resolved]
  - Impatience [Not Recovered/Not Resolved]
  - Paraesthesia [Not Recovered/Not Resolved]
  - Insomnia [Not Recovered/Not Resolved]
  - Dizziness [Not Recovered/Not Resolved]
  - Diarrhoea [Not Recovered/Not Resolved]
  - Irritability [Not Recovered/Not Resolved]
  - Anxiety [Not Recovered/Not Resolved]
  - Hyperhidrosis [Not Recovered/Not Resolved]
  - Fatigue [Not Recovered/Not Resolved]
